FAERS Safety Report 16212954 (Version 2)
Quarter: 2019Q3

REPORT INFORMATION
  Report Type: Spontaneous
  Country: JP (occurrence: JP)
  Receive Date: 20190418
  Receipt Date: 20190704
  Transmission Date: 20191004
  Serious: Yes (Death, Hospitalization, Other)
  Sender: FDA-Public Use
  Company Number: JP-BRISTOL-MYERS SQUIBB COMPANY-BMS-2018-109993

PATIENT
  Age: 75 Year
  Sex: Female
  Weight: 45.1 kg

DRUGS (3)
  1. CETUXIMABUM [Suspect]
     Active Substance: CETUXIMAB
     Indication: HEAD AND NECK CANCER
     Dosage: 315.25 MILLIGRAM
     Route: 065
     Dates: start: 20180306, end: 20180508
  2. OPDIVO [Suspect]
     Active Substance: NIVOLUMAB
     Indication: SQUAMOUS CELL CARCINOMA OF HEAD AND NECK
     Dosage: 135 MILLIGRAM
     Route: 041
     Dates: start: 20171108, end: 20180214
  3. PACLITAXEL. [Suspect]
     Active Substance: PACLITAXEL
     Indication: HEAD AND NECK CANCER
     Dosage: 100.8 MILLIGRAM
     Route: 016
     Dates: start: 20180306, end: 20180522

REACTIONS (3)
  - Interstitial lung disease [Recovering/Resolving]
  - Dermatitis acneiform [Recovering/Resolving]
  - Malignant neoplasm progression [Fatal]

NARRATIVE: CASE EVENT DATE: 20171114
